FAERS Safety Report 5294543-9 (Version None)
Quarter: 2007Q2

REPORT INFORMATION
  Report Type: 
  Country: None (occurrence: None)
  Receive Date: 20070412
  Receipt Date: 20070411
  Transmission Date: 20071010
  Serious: Yes (Other)
  Sender: FDA-Public Use
  Company Number: US-JNJFOC-20070401457

PATIENT
  Sex: Female

DRUGS (7)
  1. TOPAMAX [Suspect]
     Indication: NEURALGIA
     Route: 048
  2. ASPIRIN [Concomitant]
     Indication: DRUG THERAPY
     Route: 048
  3. OXYCODONE HCL [Concomitant]
     Indication: NEURALGIA
     Route: 048
  4. OXYCONTIN [Concomitant]
     Indication: PAIN
     Dosage: AS NEEDED
     Route: 048
  5. CARDIAZEM [Concomitant]
  6. METOPROLOL SUCCINATE [Concomitant]
  7. CELEXA [Concomitant]
     Route: 048

REACTIONS (1)
  - LOSS OF CONSCIOUSNESS [None]
